FAERS Safety Report 19122262 (Version 2)
Quarter: 2021Q2

REPORT INFORMATION
  Report Type: Spontaneous
  Country: US (occurrence: US)
  Receive Date: 20210412
  Receipt Date: 20210514
  Transmission Date: 20210717
  Serious: Yes (Death, Other)
  Sender: FDA-Public Use
  Company Number: US-ROCHE-2808427

PATIENT
  Age: 79 Year
  Sex: Female

DRUGS (2)
  1. ACTIVASE [Suspect]
     Active Substance: ALTEPLASE
     Indication: CEREBROVASCULAR ACCIDENT
     Route: 042
     Dates: start: 20210329, end: 20210329
  2. ACTIVASE [Suspect]
     Active Substance: ALTEPLASE
     Dosage: ONE TIME DOSE.
     Route: 042
     Dates: start: 20210226

REACTIONS (3)
  - Haemorrhage [Unknown]
  - Blood pressure increased [Unknown]
  - Death [Fatal]

NARRATIVE: CASE EVENT DATE: 20210329
